FAERS Safety Report 13738264 (Version 1)
Quarter: 2017Q3

REPORT INFORMATION
  Report Type: Spontaneous
  Country: BR (occurrence: BR)
  Receive Date: 20170710
  Receipt Date: 20170710
  Transmission Date: 20171127
  Serious: Yes (Other)
  Sender: FDA-Public Use
  Company Number: PHHY2011BR11725

PATIENT
  Age: 73 Year
  Sex: Female

DRUGS (9)
  1. HYDERGINE [Suspect]
     Active Substance: ERGOLOID MESYLATES
     Dosage: 1 DF, QD
     Dates: start: 20100720
  2. RIVOTRIL [Concomitant]
     Active Substance: CLONAZEPAM
     Dosage: 0.25 DF, QD
  3. HYDERGINE [Suspect]
     Active Substance: ERGOLOID MESYLATES
     Dosage: 0.5 DF, QD
     Dates: start: 201005
  4. HYDERGINE [Suspect]
     Active Substance: ERGOLOID MESYLATES
     Indication: BRAIN HYPOXIA
     Dosage: 1 DF, QD
     Dates: start: 2001
  5. CAPTOPRIL. [Concomitant]
     Active Substance: CAPTOPRIL
     Dosage: 2 DF, QD
  6. LASIX [Concomitant]
     Active Substance: FUROSEMIDE
     Indication: SWELLING
     Dosage: 0.5 DF, QD
     Dates: start: 2008
  7. RIVOTRIL [Concomitant]
     Active Substance: CLONAZEPAM
     Indication: DIZZINESS
     Dosage: 0.5 DF, QD
     Dates: start: 1979
  8. PURAN [Concomitant]
     Active Substance: LEVOTHYROXINE SODIUM
     Indication: HYPOTHYROIDISM
     Dosage: 1 DF, QD
     Dates: start: 2003
  9. OMEPRAZOLE. [Concomitant]
     Active Substance: OMEPRAZOLE
     Indication: GASTRITIS
     Dosage: 2 DF, QD
     Dates: start: 2008

REACTIONS (7)
  - Diverticulitis [Unknown]
  - Fibromyalgia [Unknown]
  - Pain [Unknown]
  - Ligament sprain [Unknown]
  - Hypothyroidism [Unknown]
  - Osteoarthritis [Unknown]
  - Gastrooesophageal reflux disease [Recovered/Resolved]

NARRATIVE: CASE EVENT DATE: 2003
